FAERS Safety Report 5477814-2 (Version None)
Quarter: 2007Q4

REPORT INFORMATION
  Report Type: 
  Country: None (occurrence: None)
  Receive Date: 20071004
  Receipt Date: 20070928
  Transmission Date: 20080405
  Serious: Yes (Disabling, Other)
  Sender: FDA-Public Use
  Company Number: US-GILEAD-2007-0013063

PATIENT
  Sex: Female
  Weight: 113.5 kg

DRUGS (10)
  1. LETAIRIS [Suspect]
     Indication: PULMONARY HYPERTENSION
     Route: 048
     Dates: start: 20070807
  2. VENTAVIS [Suspect]
     Indication: PULMONARY HYPERTENSION
     Route: 055
     Dates: start: 20070528
  3. WARFARIN SODIUM [Concomitant]
     Indication: THROMBOSIS PROPHYLAXIS
     Route: 048
  4. NORVASC [Concomitant]
     Indication: ESSENTIAL HYPERTENSION
     Route: 048
  5. LASIX [Concomitant]
     Indication: CARDIAC FAILURE CONGESTIVE
     Route: 048
  6. DYAZIDE [Concomitant]
     Indication: OEDEMA
  7. ALBUTEROL [Concomitant]
     Route: 055
  8. ADVAIR DISKUS 100/50 [Concomitant]
     Route: 055
  9. PROZAC [Concomitant]
     Indication: DEPRESSION
  10. RANITIDINE HCL [Concomitant]
     Indication: GASTROOESOPHAGEAL REFLUX DISEASE

REACTIONS (5)
  - CONSTIPATION [None]
  - DEPRESSION [None]
  - DYSPNOEA [None]
  - NASAL CONGESTION [None]
  - OEDEMA [None]
